FAERS Safety Report 5931637-6 (Version None)
Quarter: 2008Q4

REPORT INFORMATION
  Report Type: 
  Country: None (occurrence: None)
  Receive Date: 20081027
  Receipt Date: 20081016
  Transmission Date: 20090506
  Serious: Yes (Other)
  Sender: FDA-Public Use
  Company Number: DE-JNJFOC-20081000114

PATIENT
  Sex: Male
  Weight: 63 kg

DRUGS (4)
  1. INVEGA [Suspect]
     Route: 048
  2. INVEGA [Suspect]
     Indication: SCHIZOPHRENIA, PARANOID TYPE
     Route: 048
  3. DIPIPERON [Interacting]
     Indication: AGITATION
     Route: 048
  4. CITALOPRAM HYDROBROMIDE [Interacting]
     Indication: DEPRESSION
     Route: 048

REACTIONS (3)
  - DRUG INTERACTION [None]
  - LEUKOPENIA [None]
  - THROMBOCYTOPENIA [None]
